FAERS Safety Report 13561421 (Version 1)
Quarter: 2017Q2

REPORT INFORMATION
  Report Type: Spontaneous
  Country: US (occurrence: US)
  Receive Date: 20170518
  Receipt Date: 20170518
  Transmission Date: 20170830
  Serious: No
  Sender: FDA-Public Use
  Company Number: US-AUROBINDO-AUR-APU-2016-11606

PATIENT
  Sex: Female

DRUGS (3)
  1. DOXYCYCLINE. [Concomitant]
     Active Substance: DOXYCYCLINE
     Indication: PRODUCT USED FOR UNKNOWN INDICATION
     Route: 065
  2. PYRODEX [Concomitant]
     Indication: PRODUCT USED FOR UNKNOWN INDICATION
     Route: 065
  3. CEFUROXIME AXETIL TABLETS USP 250 MG [Suspect]
     Active Substance: CEFUROXIME AXETIL
     Indication: LYME DISEASE
     Dosage: 250 MG, TWO TIMES A DAY
     Route: 065

REACTIONS (2)
  - Product solubility abnormal [Not Recovered/Not Resolved]
  - Medication residue present [Not Recovered/Not Resolved]
